FAERS Safety Report 8457997-2 (Version None)
Quarter: 2012Q2

REPORT INFORMATION
  Report Type: 
  Country: None (occurrence: None)
  Receive Date: 20120323
  Receipt Date: 20111013
  Transmission Date: 20120825
  Serious: Yes (Other)
  Sender: FDA-Public Use
  Company Number: 163-21880-11101551

PATIENT
  Age: 70 Year
  Sex: Female

DRUGS (9)
  1. PERCOCET [Concomitant]
  2. LYRICA [Concomitant]
  3. ACIDOPHILUS XTRA (INFLORAN) [Concomitant]
  4. LENALIDOMIDE [Suspect]
     Indication: MULTIPLE MYELOMA
     Dosage: 25 MG, PO
     Route: 048
     Dates: start: 20070809
  5. ASPIRIN [Concomitant]
  6. ACYCLOVIR [Concomitant]
  7. MULTIVITAMIN [Concomitant]
  8. METAMUCIL MULTIHEALTH FIBER (ISPAGHULA) [Concomitant]
  9. BENICAR HCT [Concomitant]

REACTIONS (1)
  - HYPERSENSITIVITY [None]
